FAERS Safety Report 9096925 (Version 2)
Quarter: 2013Q1

REPORT INFORMATION
  Report Type: Spontaneous
  Country: BE (occurrence: BE)
  Receive Date: 20130211
  Receipt Date: 20130221
  Transmission Date: 20140127
  Serious: Yes (Death, Hospitalization, Other)
  Sender: FDA-Public Use
  Company Number: BE-AMGEN-BELSP2013008243

PATIENT
  Age: 80 Year
  Sex: Female

DRUGS (1)
  1. PROLIA [Suspect]
     Indication: OSTEOPOROSIS
     Dosage: UNK
     Dates: start: 20110718

REACTIONS (6)
  - Staphylococcal sepsis [Fatal]
  - Acute respiratory failure [Unknown]
  - Erysipelas [Unknown]
  - Pneumonia [Unknown]
  - Immunodeficiency [Unknown]
  - Oedema peripheral [Unknown]
